FAERS Safety Report 12196352 (Version 1)
Quarter: 2016Q1

REPORT INFORMATION
  Report Type: Spontaneous
  Country: TR (occurrence: TR)
  Receive Date: 20160321
  Receipt Date: 20160321
  Transmission Date: 20160526
  Serious: Yes (Death, Other)
  Sender: FDA-Public Use
  Company Number: TR-JNJFOC-20160313631

PATIENT

DRUGS (1)
  1. INFLIXIMAB, RECOMBINANT [Suspect]
     Active Substance: INFLIXIMAB
     Indication: BEHCET^S SYNDROME
     Dosage: RECEIVED THREE INFUSION
     Route: 042

REACTIONS (6)
  - Pneumonia [Fatal]
  - Pulmonary artery thrombosis [Unknown]
  - Drug ineffective for unapproved indication [Unknown]
  - Sepsis [Fatal]
  - Product use issue [Unknown]
  - Off label use [Unknown]
